FAERS Safety Report 12110558 (Version 2)
Quarter: 2016Q1

REPORT INFORMATION
  Report Type: Spontaneous
  Country: CO (occurrence: CO)
  Receive Date: 20160224
  Receipt Date: 20160301
  Transmission Date: 20160526
  Serious: Yes (Death)
  Sender: FDA-Public Use
  Company Number: CO-BIOMARINAP-CO-2016-109003

PATIENT
  Sex: Female
  Weight: 17 kg

DRUGS (1)
  1. NAGLAZYME [Suspect]
     Active Substance: GALSULFASE
     Indication: PRODUCT USED FOR UNKNOWN INDICATION
     Dosage: UNK
     Route: 065

REACTIONS (3)
  - Death [Fatal]
  - Cyanosis [Unknown]
  - Cardiac disorder [Unknown]
